FAERS Safety Report 8935357 (Version 1)
Quarter: 2012Q4

REPORT INFORMATION
  Report Type: Spontaneous
  Country: US (occurrence: None)
  Receive Date: 20121127
  Receipt Date: 20121127
  Transmission Date: 20130627
  Serious: Yes (Hospitalization)
  Sender: FDA-Public Use
  Company Number: None

PATIENT
  Age: 57 Year
  Sex: Female
  Weight: 112.63 kg

DRUGS (1)
  1. SUTENT [Suspect]
     Indication: MELANOMA
     Dosage: 37.5 mg oral (25mg/12.5mg)
     Route: 048
     Dates: start: 20120410

REACTIONS (2)
  - Headache [None]
  - Metastases to central nervous system [None]
